FAERS Safety Report 19812391 (Version 1)
Quarter: 2021Q3

REPORT INFORMATION
  Report Type: Spontaneous
  Country: KW (occurrence: KW)
  Receive Date: 20210909
  Receipt Date: 20210909
  Transmission Date: 20211014
  Serious: Yes (Death, Hospitalization)
  Sender: FDA-Public Use
  Company Number: KW-ALVOGEN-2021-ALVOGEN-117438

PATIENT
  Age: 50 Year
  Sex: Female

DRUGS (2)
  1. VORICONAZOLE. [Suspect]
     Active Substance: VORICONAZOLE
     Indication: FUNGAL INFECTION
  2. AMPHOTERICIN B. [Suspect]
     Active Substance: AMPHOTERICIN B
     Indication: ABSCESS

REACTIONS (4)
  - Tachypnoea [Fatal]
  - Drug ineffective [Fatal]
  - Shift work disorder [Fatal]
  - Dyskinesia [Fatal]
